FAERS Safety Report 14611742 (Version 3)
Quarter: 2022Q1

REPORT INFORMATION
  Report Type: Spontaneous
  Country: US (occurrence: US)
  Receive Date: 20180308
  Receipt Date: 20220113
  Transmission Date: 20220424
  Serious: No
  Sender: FDA-Public Use
  Company Number: US-PFIZER INC-2018093069

PATIENT
  Age: 59 Year
  Sex: Female

DRUGS (1)
  1. RAPAMUNE [Suspect]
     Active Substance: SIROLIMUS
     Indication: Heart transplant
     Dosage: 1 MG, DAILY
     Route: 048

REACTIONS (3)
  - Fall [Unknown]
  - Pain [Unknown]
  - Off label use [Unknown]
